FAERS Safety Report 24711286 (Version 1)
Quarter: 2024Q4

REPORT INFORMATION
  Report Type: Spontaneous
  Country: CN (occurrence: CN)
  Receive Date: 20241209
  Receipt Date: 20241209
  Transmission Date: 20250115
  Serious: Yes (Life-Threatening, Hospitalization)
  Sender: PFIZER
  Company Number: CN-PFIZER INC-PV202400158214

PATIENT
  Age: 20 Year
  Sex: Female
  Weight: 47.5 kg

DRUGS (4)
  1. PACLITAXEL [Suspect]
     Active Substance: PACLITAXEL
     Indication: Neoplasm malignant
     Dosage: 240 MG, 1X/DAY
     Route: 041
     Dates: start: 20210226, end: 20210226
  2. PACLITAXEL [Suspect]
     Active Substance: PACLITAXEL
     Indication: Endometrial cancer
  3. CARBOPLATIN [Suspect]
     Active Substance: CARBOPLATIN
     Indication: Neoplasm malignant
     Dosage: 480 MG, 1X/DAY
     Route: 041
     Dates: start: 20210226, end: 20210226
  4. CARBOPLATIN [Suspect]
     Active Substance: CARBOPLATIN
     Indication: Endometrial cancer

REACTIONS (3)
  - Epilepsy [Recovering/Resolving]
  - Renal impairment [Recovered/Resolved]
  - Off label use [Unknown]

NARRATIVE: CASE EVENT DATE: 20210226
